FAERS Safety Report 6244447-X (Version None)
Quarter: 2009Q2

REPORT INFORMATION
  Report Type: 
  Country: None (occurrence: None)
  Receive Date: 20090623
  Receipt Date: 20090623
  Transmission Date: 20091009
  Serious: Yes (Hospitalization)
  Sender: FDA-Public Use
  Company Number: None

PATIENT
  Sex: Male
  Weight: 71 kg

DRUGS (2)
  1. FLUOROURACIL [Suspect]
     Dosage: 5204 MG
     Dates: end: 20090603
  2. LEUCOVORIN CALCIUM [Suspect]
     Dosage: 740 MG
     Dates: end: 20090603

REACTIONS (5)
  - CELLULITIS [None]
  - JUGULAR VEIN THROMBOSIS [None]
  - SUBCLAVIAN VEIN THROMBOSIS [None]
  - VASCULAR ACCESS COMPLICATION [None]
  - VENOOCCLUSIVE DISEASE [None]
